FAERS Safety Report 11841984 (Version 1)
Quarter: 2015Q4

REPORT INFORMATION
  Report Type: Spontaneous
  Country: US (occurrence: US)
  Receive Date: 20151216
  Receipt Date: 20151216
  Transmission Date: 20160305
  Serious: No
  Sender: FDA-Public Use
  Company Number: US-ASTRAZENECA-2015SF23303

PATIENT
  Sex: Female
  Weight: 120.2 kg

DRUGS (1)
  1. BYDUREON [Suspect]
     Active Substance: EXENATIDE
     Indication: TYPE 2 DIABETES MELLITUS
     Route: 058
     Dates: start: 20151118

REACTIONS (4)
  - Injection site haemorrhage [Unknown]
  - Injection site extravasation [Unknown]
  - Intentional device misuse [Unknown]
  - Underdose [Unknown]
